FAERS Safety Report 9285950 (Version 1)
Quarter: 2013Q2

REPORT INFORMATION
  Report Type: Report from Study
  Country: BR (occurrence: BR)
  Receive Date: 20130513
  Receipt Date: 20130513
  Transmission Date: 20140414
  Serious: Yes (Death, Hospitalization)
  Sender: FDA-Public Use
  Company Number: BR-ROCHE-754081

PATIENT
  Age: 65 Year
  Sex: Female

DRUGS (4)
  1. RITUXIMAB [Suspect]
     Indication: RHEUMATOID ARTHRITIS
     Route: 042
     Dates: start: 201004, end: 20121002
  2. FISH OIL [Concomitant]
     Route: 065
  3. CLEXANE [Concomitant]
     Route: 065
  4. PREDNISOLONE [Concomitant]
     Dosage: FREQUENCY: UNREPORTED
     Route: 065

REACTIONS (4)
  - Cardio-respiratory arrest [Fatal]
  - Femur fracture [Recovering/Resolving]
  - Fall [Recovered/Resolved]
  - Dysphonia [Not Recovered/Not Resolved]
